FAERS Safety Report 21718927 (Version 1)
Quarter: 2022Q4

REPORT INFORMATION
  Report Type: Spontaneous
  Country: US (occurrence: US)
  Receive Date: 20221213
  Receipt Date: 20221213
  Transmission Date: 20230113
  Serious: No
  Sender: FDA-Public Use
  Company Number: US-SA-SAC20221208001353

PATIENT
  Sex: Female
  Weight: 67.574 kg

DRUGS (15)
  1. DUPIXENT [Suspect]
     Active Substance: DUPILUMAB
     Indication: Dermatitis atopic
     Dosage: 300 MG QOW
     Route: 058
     Dates: end: 2022
  2. METFORMIN HYDROCHLORIDE [Concomitant]
     Active Substance: METFORMIN HYDROCHLORIDE
  3. ANAFRANIL [Concomitant]
     Active Substance: CLOMIPRAMINE HYDROCHLORIDE
  4. LAMICTAL XR [Concomitant]
     Active Substance: LAMOTRIGINE
  5. RISPERDAL [Concomitant]
     Active Substance: RISPERIDONE
  6. SAPHRIS [Concomitant]
     Active Substance: ASENAPINE MALEATE
  7. QUETIAPINE FUMARATE [Concomitant]
     Active Substance: QUETIAPINE FUMARATE
  8. LAMOTRIGINE [Concomitant]
     Active Substance: LAMOTRIGINE
  9. RILUZOLE [Concomitant]
     Active Substance: RILUZOLE
  10. CLOMIPRAMINE HYDROCHLORIDE [Concomitant]
     Active Substance: CLOMIPRAMINE HYDROCHLORIDE
  11. PIMOZIDE [Concomitant]
     Active Substance: PIMOZIDE
  12. KETOROLAC TROMETHAMINE [Concomitant]
     Active Substance: KETOROLAC TROMETHAMINE
  13. ALPRAZOLAM [Concomitant]
     Active Substance: ALPRAZOLAM
  14. FLUCELVAX QUAD [Concomitant]
     Indication: Immunisation
     Dosage: UNK
  15. MODERNA COVID-19 VACCINE [Concomitant]
     Active Substance: ELASOMERAN
     Indication: Immunisation

REACTIONS (3)
  - Skin fissures [Not Recovered/Not Resolved]
  - Skin haemorrhage [Not Recovered/Not Resolved]
  - Product prescribing issue [Unknown]
